FAERS Safety Report 10152742 (Version 2)
Quarter: 2014Q2

REPORT INFORMATION
  Report Type: Report from Study
  Country: GR (occurrence: GR)
  Receive Date: 20140505
  Receipt Date: 20140523
  Transmission Date: 20141212
  Serious: Yes (Other)
  Sender: FDA-Public Use
  Company Number: GR-TEVA-478467ISR

PATIENT
  Sex: 0

DRUGS (2)
  1. PAXENE PACLITAXEL [Suspect]
  2. PLATINUM (CCDP) [Concomitant]

REACTIONS (4)
  - Bone marrow toxicity [Unknown]
  - Diarrhoea [Unknown]
  - Proctitis [Unknown]
  - Enteritis [Unknown]
